FAERS Safety Report 13748288 (Version 1)
Quarter: 2017Q3

REPORT INFORMATION
  Report Type: Spontaneous
  Country: US (occurrence: US)
  Receive Date: 20170713
  Receipt Date: 20170713
  Transmission Date: 20171127
  Serious: Yes (Other)
  Sender: FDA-Public Use
  Company Number: US-PFIZER INC-2017299336

PATIENT
  Sex: Female

DRUGS (1)
  1. METHOTREXATE SODIUM. [Suspect]
     Active Substance: METHOTREXATE SODIUM
     Dosage: 2.5 MG, UNK

REACTIONS (7)
  - Back pain [Unknown]
  - Intervertebral disc degeneration [Unknown]
  - C-reactive protein increased [Unknown]
  - Pain in extremity [Unknown]
  - Renal failure [Unknown]
  - Arthralgia [Unknown]
  - Joint swelling [Unknown]
